FAERS Safety Report 9117280 (Version 1)
Quarter: 2013Q1

REPORT INFORMATION
  Report Type: Spontaneous
  Country: FR (occurrence: FR)
  Receive Date: 20130225
  Receipt Date: 20130225
  Transmission Date: 20140127
  Serious: Yes (Hospitalization)
  Sender: FDA-Public Use
  Company Number: FR-JNJFOC-20130210467

PATIENT
  Age: 75 Year
  Sex: Female

DRUGS (10)
  1. XARELTO [Suspect]
     Indication: CEREBROVASCULAR ACCIDENT
     Route: 048
     Dates: start: 20121108, end: 20121129
  2. XARELTO [Suspect]
     Indication: ATRIAL FIBRILLATION
     Route: 048
     Dates: start: 20121108, end: 20121129
  3. IMOVANE [Concomitant]
     Route: 048
  4. TRANSIPEG [Concomitant]
     Route: 048
  5. TAREG [Concomitant]
     Route: 048
  6. INEXIUM [Concomitant]
     Route: 048
  7. SOTALOL HCL [Concomitant]
     Route: 048
  8. SIMVASTATINE [Concomitant]
     Route: 048
  9. FURADANTINE [Concomitant]
     Indication: URINARY TRACT INFECTION
     Route: 048
     Dates: start: 20121116, end: 20121123
  10. DAFALGAN [Concomitant]
     Route: 048

REACTIONS (2)
  - Urticaria [Recovered/Resolved]
  - Underdose [Unknown]
